FAERS Safety Report 14942929 (Version 2)
Quarter: 2018Q3

REPORT INFORMATION
  Report Type: Spontaneous
  Country: SK (occurrence: SK)
  Receive Date: 20180528
  Receipt Date: 20180816
  Transmission Date: 20181010
  Serious: Yes (Hospitalization)
  Sender: FDA-Public Use
  Company Number: SK-GLAXOSMITHKLINE-SK2018GSK093384

PATIENT
  Age: 73 Year
  Sex: Female

DRUGS (3)
  1. TIOTROPIUM RESPIMAT [Suspect]
     Active Substance: TIOTROPIUM
     Indication: CHRONIC OBSTRUCTIVE PULMONARY DISEASE
     Dosage: UNK
     Dates: start: 2015, end: 2017
  2. INCRUSE ELLIPTA [Suspect]
     Active Substance: UMECLIDINIUM BROMIDE
     Indication: CHRONIC OBSTRUCTIVE PULMONARY DISEASE
     Dosage: UNK
     Dates: start: 2017
  3. RELVAR ELLIPTA [Suspect]
     Active Substance: FLUTICASONE FUROATE\VILANTEROL TRIFENATATE
     Indication: CHRONIC OBSTRUCTIVE PULMONARY DISEASE
     Dosage: UNK
     Dates: start: 2015, end: 2017

REACTIONS (2)
  - Chronic obstructive pulmonary disease [Unknown]
  - Herpes virus infection [Unknown]

NARRATIVE: CASE EVENT DATE: 2015
